FAERS Safety Report 10880365 (Version 1)
Quarter: 2015Q1

REPORT INFORMATION
  Report Type: Spontaneous
  Country: TR (occurrence: TR)
  Receive Date: 20150302
  Receipt Date: 20150302
  Transmission Date: 20150721
  Serious: Yes (Other)
  Sender: FDA-Public Use
  Company Number: PHHY2015TR022147

PATIENT
  Age: 17 Year
  Sex: Male
  Weight: 52 kg

DRUGS (3)
  1. SOMATROPIN [Suspect]
     Active Substance: SOMATROPIN
     Indication: GROWTH HORMONE DEFICIENCY
     Dosage: 30 IU, ONCE/SINGLE
     Route: 058
     Dates: start: 20130315
  2. SOMATROPIN [Suspect]
     Active Substance: SOMATROPIN
     Dosage: 30 IU, ONCE/SINGLE
     Route: 058
  3. EUTHYROX [Suspect]
     Active Substance: LEVOTHYROXINE SODIUM
     Indication: GOITRE
     Dosage: 50 UG, ONCE/SINGLE
     Route: 048

REACTIONS (2)
  - Neoplasm [Unknown]
  - Dental caries [Unknown]

NARRATIVE: CASE EVENT DATE: 201408
